FAERS Safety Report 7250007-4 (Version None)
Quarter: 2011Q1

REPORT INFORMATION
  Report Type: 
  Country: None (occurrence: None)
  Receive Date: 20110128
  Receipt Date: 20110125
  Transmission Date: 20110831
  Serious: Yes (Life-Threatening, Hospitalization)
  Sender: FDA-Public Use
  Company Number: PHHO2011US01838

PATIENT
  Sex: Female
  Weight: 65 kg

DRUGS (9)
  1. ASPIRIN [Concomitant]
  2. COMPAZINE [Concomitant]
     Indication: VOMITING
  3. OMEPRAZOLE [Concomitant]
     Indication: ABDOMINAL DISCOMFORT
  4. PRAVASTATIN [Concomitant]
     Indication: HYPERLIPIDAEMIA
  5. METOPROLOL [Concomitant]
     Indication: HYPERTENSION
  6. TASIGNA [Suspect]
     Indication: CHRONIC MYELOID LEUKAEMIA
     Dosage: 400 MG, BID
     Route: 048
     Dates: start: 20080130
  7. HYDROCHLOROTHIAZIDE [Concomitant]
     Indication: HYPERTENSION
  8. COMPAZINE [Concomitant]
     Indication: NAUSEA
     Dosage: UNK
  9. AMBIEN CR [Concomitant]
     Indication: INSOMNIA

REACTIONS (4)
  - TROPONIN I INCREASED [None]
  - CORONARY ARTERY STENOSIS [None]
  - STENT PLACEMENT [None]
  - ACUTE MYOCARDIAL INFARCTION [None]
